FAERS Safety Report 13061433 (Version 1)
Quarter: 2016Q4

REPORT INFORMATION
  Report Type: Report from Study
  Country: DE (occurrence: DE)
  Receive Date: 20161226
  Receipt Date: 20161226
  Transmission Date: 20170207
  Serious: Yes (Death, Other)
  Sender: FDA-Public Use
  Company Number: DE-ROCHE-1868337

PATIENT

DRUGS (4)
  1. CAPECITABINE. [Suspect]
     Active Substance: CAPECITABINE
     Indication: ADENOCARCINOMA GASTRIC
     Dosage: ON DAYS 1 TO 21.
     Route: 048
  2. CISPLATIN. [Suspect]
     Active Substance: CISPLATIN
     Indication: ADENOCARCINOMA GASTRIC
     Dosage: ON DAY 1.
     Route: 042
  3. FLUOROURACIL. [Suspect]
     Active Substance: FLUOROURACIL
     Indication: ADENOCARCINOMA GASTRIC
     Dosage: ON DAYS 1 TO 21.
     Route: 042
  4. EPIRUBICIN [Suspect]
     Active Substance: EPIRUBICIN
     Indication: ADENOCARCINOMA GASTRIC
     Dosage: ON DAY 1.
     Route: 042

REACTIONS (34)
  - Anaemia [Unknown]
  - Febrile neutropenia [Unknown]
  - Myocardial ischaemia [Unknown]
  - Fatigue [Unknown]
  - Impaired healing [Unknown]
  - Pneumonia [Unknown]
  - Intestinal obstruction [Unknown]
  - Diarrhoea [Unknown]
  - Dysphagia [Unknown]
  - Neurotoxicity [Unknown]
  - Palmar-plantar erythrodysaesthesia syndrome [Unknown]
  - General physical health deterioration [Unknown]
  - Nausea [Unknown]
  - Stomatitis [Unknown]
  - Decreased appetite [Unknown]
  - Dyspnoea [Unknown]
  - Renal impairment [Unknown]
  - Anastomotic leak [Unknown]
  - Abscess [Unknown]
  - Leukopenia [Unknown]
  - Thrombocytopenia [Unknown]
  - Pulmonary embolism [Unknown]
  - Deep vein thrombosis [Unknown]
  - Cardiac disorder [Unknown]
  - Pain [Unknown]
  - Pyrexia [Unknown]
  - Hypoacusis [Unknown]
  - Arrhythmia [Unknown]
  - Weight decreased [Unknown]
  - Sepsis [Fatal]
  - Infection [Unknown]
  - Vomiting [Unknown]
  - Pleural disorder [Unknown]
  - Neutropenia [Unknown]
